FAERS Safety Report 4459773-4 (Version None)
Quarter: 2004Q3

REPORT INFORMATION
  Report Type: 
  Country: None (occurrence: None)
  Receive Date: 20040928
  Receipt Date: 20040325
  Transmission Date: 20050211
  Serious: No
  Sender: FDA-Public Use
  Company Number: US-BRISTOL-MYERS SQUIBB COMPANY-12542528

PATIENT
  Age: 70 Year
  Sex: Female

DRUGS (1)
  1. KENALOG-40 [Suspect]
     Indication: ARTHRITIS
     Dates: start: 20040322

REACTIONS (3)
  - BURNING SENSATION [None]
  - ERYTHEMA [None]
  - SWELLING FACE [None]
